FAERS Safety Report 6905168-0 (Version None)
Quarter: 2010Q3

REPORT INFORMATION
  Report Type: 
  Country: None (occurrence: None)
  Receive Date: 20100804
  Receipt Date: 20091103
  Transmission Date: 20110219
  Serious: No
  Sender: FDA-Public Use
  Company Number: US-PFIZER INC-2009246120

PATIENT
  Sex: Male
  Weight: 82.993 kg

DRUGS (3)
  1. LYRICA [Suspect]
     Indication: BACK PAIN
     Dosage: 100 MG, 3X/DAY
     Route: 048
     Dates: start: 20080102, end: 20090722
  2. LYRICA [Suspect]
     Indication: PERIPHERAL NERVE INJURY
  3. OXYCONTIN [Concomitant]
     Dosage: UNK

REACTIONS (4)
  - ANXIETY [None]
  - HEART RATE DECREASED [None]
  - HYPERTENSION [None]
  - WEIGHT INCREASED [None]
